FAERS Safety Report 10508526 (Version 8)
Quarter: 2015Q3

REPORT INFORMATION
  Report Type: Report from Study
  Country: CA (occurrence: CA)
  Receive Date: 20141009
  Receipt Date: 20150821
  Transmission Date: 20151125
  Serious: Yes (Other)
  Sender: FDA-Public Use
  Company Number: CA-GSKJP-KK201304856GSK1550188002

PATIENT

DRUGS (31)
  1. TYLENOL [Concomitant]
     Active Substance: ACETAMINOPHEN
     Indication: PRODUCT USED FOR UNKNOWN INDICATION
     Dosage: UNK
  2. DOMPERIDONE [Concomitant]
     Active Substance: DOMPERIDONE
     Indication: PRODUCT USED FOR UNKNOWN INDICATION
     Dosage: UNK
  3. ROSUVASTATIN [Suspect]
     Active Substance: ROSUVASTATIN
     Indication: BLOOD CHOLESTEROL INCREASED
     Route: 065
  4. FOLIC ACID. [Concomitant]
     Active Substance: FOLIC ACID
     Indication: SYSTEMIC LUPUS ERYTHEMATOSUS
     Dosage: UNK, 1D
     Route: 048
  5. NIFEDIPINE. [Concomitant]
     Active Substance: NIFEDIPINE
     Indication: PRODUCT USED FOR UNKNOWN INDICATION
     Dosage: UNK
  6. BELIMUMAB [Suspect]
     Active Substance: BELIMUMAB
     Dosage: UNK
     Dates: start: 20120302
  7. BELIMUMAB [Suspect]
     Active Substance: BELIMUMAB
     Dosage: 1090 MG, UNK
     Dates: start: 20120316
  8. PREDNISONE. [Concomitant]
     Active Substance: PREDNISONE
     Indication: SYSTEMIC LUPUS ERYTHEMATOSUS
     Dosage: 5 MG, 1D
     Route: 048
  9. NEXIUM [Concomitant]
     Active Substance: ESOMEPRAZOLE MAGNESIUM
     Indication: PRODUCT USED FOR UNKNOWN INDICATION
     Dosage: 40 MG, 1D
  10. TECTA [Concomitant]
     Active Substance: PANTOPRAZOLE MAGNESIUM
     Indication: PRODUCT USED FOR UNKNOWN INDICATION
     Dosage: UNK
  11. BELIMUMAB [Suspect]
     Active Substance: BELIMUMAB
     Dosage: UNK
     Dates: start: 20120302
  12. VITAMIN D [Concomitant]
     Active Substance: CHOLECALCIFEROL
     Indication: SYSTEMIC LUPUS ERYTHEMATOSUS
     Dosage: 1000 IU, 1D
  13. MELOXICAM. [Concomitant]
     Active Substance: MELOXICAM
     Indication: PRODUCT USED FOR UNKNOWN INDICATION
     Dosage: UNK
  14. BELIMUMAB [Suspect]
     Active Substance: BELIMUMAB
     Indication: SYSTEMIC LUPUS ERYTHEMATOSUS
     Dosage: 1000 MG INFUSION AT WEEK 0,2,4 AND THEN MONTHLY(EVERY 4 WEEKS)
     Route: 042
     Dates: start: 20120302
  15. BELIMUMAB [Suspect]
     Active Substance: BELIMUMAB
     Dosage: UNK
     Dates: start: 20120302
  16. BELIMUMAB [Suspect]
     Active Substance: BELIMUMAB
     Dosage: 1090 MG, UNK
     Dates: start: 2013
  17. ADALAT CC [Concomitant]
     Active Substance: NIFEDIPINE
     Indication: HYPERTENSION
     Dosage: 30 MG, 1D
     Route: 048
  18. NORVASC [Concomitant]
     Active Substance: AMLODIPINE BESYLATE
     Indication: PRODUCT USED FOR UNKNOWN INDICATION
     Dosage: 10 MG, 1D
  19. REFLEX (CAMPHOR + MENTHOL + METHYL SALICYLATE + TURPENTINE) [Concomitant]
     Indication: PAIN IN EXTREMITY
  20. ACTONEL [Concomitant]
     Active Substance: RISEDRONATE SODIUM
     Indication: PRODUCT USED FOR UNKNOWN INDICATION
     Dosage: 35 MG, UNK
  21. CRESTOR [Concomitant]
     Active Substance: ROSUVASTATIN CALCIUM
     Indication: PRODUCT USED FOR UNKNOWN INDICATION
     Dosage: UNK
  22. BELIMUMAB [Suspect]
     Active Substance: BELIMUMAB
     Dosage: UNK
     Dates: start: 20120302
  23. BELIMUMAB [Suspect]
     Active Substance: BELIMUMAB
     Dosage: UNK, 3 VIALS
  24. BELIMUMAB [Suspect]
     Active Substance: BELIMUMAB
     Dosage: ,UNK, 2 VIALS
  25. METHOTREXATE [Suspect]
     Active Substance: METHOTREXATE
     Indication: SYSTEMIC LUPUS ERYTHEMATOSUS
     Route: 048
  26. SYNTHROID [Concomitant]
     Active Substance: LEVOTHYROXINE SODIUM
     Indication: PRODUCT USED FOR UNKNOWN INDICATION
     Dosage: UNK
  27. COLACE [Concomitant]
     Active Substance: DOCUSATE SODIUM
     Indication: PRODUCT USED FOR UNKNOWN INDICATION
     Dosage: UNK
  28. ELAVIL [Concomitant]
     Active Substance: AMITRIPTYLINE HYDROCHLORIDE
     Indication: PRODUCT USED FOR UNKNOWN INDICATION
     Dosage: 50 MG, UNK
  29. CALCIUM [Concomitant]
     Active Substance: CALCIUM
     Indication: SYSTEMIC LUPUS ERYTHEMATOSUS
     Dosage: 500 MG, UNK
  30. BENADRYL [Concomitant]
     Active Substance: DIPHENHYDRAMINE HYDROCHLORIDE
     Indication: PRODUCT USED FOR UNKNOWN INDICATION
     Dosage: UNK
  31. METHOTREXATE [Concomitant]
     Active Substance: METHOTREXATE
     Indication: PRODUCT USED FOR UNKNOWN INDICATION
     Dosage: UNK

REACTIONS (42)
  - Pyrexia [Unknown]
  - Wound [Unknown]
  - Tremor [Recovering/Resolving]
  - Vomiting [Recovered/Resolved]
  - Smear cervix abnormal [Unknown]
  - Urticaria [Recovered/Resolved]
  - Lower respiratory tract infection [Recovered/Resolved]
  - Peripheral swelling [Unknown]
  - Acrochordon [Not Recovered/Not Resolved]
  - Ill-defined disorder [Unknown]
  - Arthropathy [Unknown]
  - Erythema [Recovered/Resolved]
  - Epistaxis [Unknown]
  - Skin lesion [Unknown]
  - Basal cell carcinoma [Unknown]
  - Sinus congestion [Recovered/Resolved]
  - Blood cholesterol increased [Unknown]
  - Pain in extremity [Unknown]
  - Sinusitis [Recovered/Resolved]
  - Oral herpes [Unknown]
  - Flushing [Recovered/Resolved]
  - Skin discolouration [Recovered/Resolved]
  - Malaise [Unknown]
  - Uterine prolapse [Unknown]
  - Biopsy breast [Unknown]
  - Nausea [Recovered/Resolved]
  - Diarrhoea [Recovered/Resolved]
  - Pain [Unknown]
  - Sinusitis [Recovered/Resolved]
  - Contusion [Recovered/Resolved]
  - Gastroenteritis [Recovered/Resolved]
  - Tremor [Recovering/Resolving]
  - Muscle spasms [Recovered/Resolved]
  - Productive cough [Unknown]
  - Melanocytic naevus [Not Recovered/Not Resolved]
  - Arthritis [Unknown]
  - Initial insomnia [Not Recovered/Not Resolved]
  - Aphasia [Unknown]
  - Cyst [Recovered/Resolved]
  - Fatigue [Not Recovered/Not Resolved]
  - Hernia [Unknown]
  - Insomnia [Not Recovered/Not Resolved]

NARRATIVE: CASE EVENT DATE: 20120303
